FAERS Safety Report 9908531 (Version 1)
Quarter: 2014Q1

REPORT INFORMATION
  Report Type: Spontaneous
  Country: US (occurrence: None)
  Receive Date: 20140214
  Receipt Date: 20140214
  Transmission Date: 20141002
  Serious: Yes (Hospitalization)
  Sender: FDA-Public Use
  Company Number: None

PATIENT
  Age: 67 Year
  Sex: Female
  Weight: 86.5 kg

DRUGS (15)
  1. VISIPAQUE [Suspect]
     Indication: SCAN WITH CONTRAST
     Dosage: RECENT
     Route: 042
  2. VISIPAQUE [Suspect]
     Indication: CATHETERISATION CARDIAC
     Dosage: RECENT
     Route: 042
  3. NEURONTIN [Concomitant]
  4. LISINOPRIL [Concomitant]
  5. CELEXA [Concomitant]
  6. PLAVIX [Concomitant]
  7. LANTUS [Concomitant]
  8. CALTRATE [Concomitant]
  9. ASA [Concomitant]
  10. TOPROLXL [Concomitant]
  11. OMEGA3 [Concomitant]
  12. CHOLECALCIFEROL [Concomitant]
  13. NORVASC [Concomitant]
  14. PRIMIDONE [Concomitant]
  15. PROAIR [Concomitant]

REACTIONS (2)
  - Nephropathy toxic [None]
  - Nephropathy toxic [None]
